FAERS Safety Report 5633488-9 (Version None)
Quarter: 2008Q1

REPORT INFORMATION
  Report Type: 
  Country: None (occurrence: None)
  Receive Date: 20080219
  Receipt Date: 20080204
  Transmission Date: 20080703
  Serious: Yes (Hospitalization)
  Sender: FDA-Public Use
  Company Number: SPV1-2008-00237

PATIENT
  Age: 26 Year
  Sex: Male
  Weight: 54.4 kg

DRUGS (8)
  1. ADDERALL XR 30 [Suspect]
     Indication: ATTENTION DEFICIT/HYPERACTIVITY DISORDER
     Dosage: 20 MG, 1X/DAY: QD, ORAL; 30 MG, 4X/DAY: QID, ORAL; 20 MG, 1XDAY: QD, ORAL
     Route: 048
     Dates: start: 20071115, end: 20071101
  2. ADDERALL XR 30 [Suspect]
     Indication: ATTENTION DEFICIT/HYPERACTIVITY DISORDER
     Dosage: 20 MG, 1X/DAY: QD, ORAL; 30 MG, 4X/DAY: QID, ORAL; 20 MG, 1XDAY: QD, ORAL
     Route: 048
     Dates: start: 20080102, end: 20080101
  3. ADDERALL XR 30 [Suspect]
     Indication: ATTENTION DEFICIT/HYPERACTIVITY DISORDER
     Dosage: 20 MG, 1X/DAY: QD, ORAL; 30 MG, 4X/DAY: QID, ORAL; 20 MG, 1XDAY: QD, ORAL
     Route: 048
     Dates: start: 20080101, end: 20080211
  4. ADDERALL 10 [Concomitant]
  5. NEXIUM [Concomitant]
  6. KLONOPIN [Concomitant]
  7. LEVSIN (HYOSCYAMINE SULFATE) [Concomitant]
  8. SIMETHICON (SIMETHICONE) [Concomitant]

REACTIONS (11)
  - ABDOMINAL DISCOMFORT [None]
  - AGGRESSION [None]
  - ANGER [None]
  - ANXIETY [None]
  - DRY MOUTH [None]
  - DYSURIA [None]
  - EXOPHTHALMOS [None]
  - INTENTIONAL DRUG MISUSE [None]
  - MEMORY IMPAIRMENT [None]
  - OVERDOSE [None]
  - VASODILATATION [None]
